FAERS Safety Report 8368952-5 (Version None)
Quarter: 2012Q2

REPORT INFORMATION
  Report Type: 
  Country: None (occurrence: None)
  Receive Date: 20120516
  Receipt Date: 20120516
  Transmission Date: 20120825
  Serious: Yes (Hospitalization)
  Sender: FDA-Public Use
  Company Number: None

PATIENT
  Age: 65 Year
  Sex: Male
  Weight: 119.6 kg

DRUGS (1)
  1. ALDESKLEUKIN [Suspect]
     Indication: MALIGNANT MELANOMA
     Dosage: 18 UNITS EVERY DAY IV
     Dates: start: 20120430

REACTIONS (1)
  - CONFUSIONAL STATE [None]
